FAERS Safety Report 9261018 (Version 1)
Quarter: 2013Q2

REPORT INFORMATION
  Report Type: Spontaneous
  Country: US (occurrence: US)
  Receive Date: 20130429
  Receipt Date: 20130429
  Transmission Date: 20140414
  Serious: No
  Sender: FDA-Public Use
  Company Number: US-AMGEN-USASP2012067549

PATIENT
  Age: 52 Year
  Sex: Male

DRUGS (4)
  1. SENSIPAR [Suspect]
     Indication: SECONDARY HYPERTHYROIDISM
     Dosage: 180 MG, QD
  2. MIDODRINE [Concomitant]
  3. MANITOL [Concomitant]
  4. EPOGEN [Concomitant]
     Dosage: 1000 UNK, UNK

REACTIONS (1)
  - Headache [Unknown]
